FAERS Safety Report 4963171-4 (Version None)
Quarter: 2006Q2

REPORT INFORMATION
  Report Type: 
  Country: None (occurrence: None)
  Receive Date: 20060405
  Receipt Date: 20060105
  Transmission Date: 20061013
  Serious: Yes (Hospitalization)
  Sender: FDA-Public Use
  Company Number: US-MERCK-0601USA00477

PATIENT
  Age: 55 Year
  Sex: Male

DRUGS (9)
  1. VIOXX [Suspect]
     Indication: ARTHRITIS
     Route: 048
     Dates: start: 20000424, end: 20010401
  2. VIOXX [Suspect]
     Indication: BACK PAIN
     Route: 048
     Dates: start: 20000424, end: 20010401
  3. BUPROPION HYDROCHLORIDE [Concomitant]
     Route: 065
  4. XANAX [Concomitant]
     Route: 065
  5. NIFEDIPINE [Concomitant]
     Route: 065
  6. FOSINOPRIL SODIUM [Concomitant]
     Route: 065
  7. ALPRAZOLAM [Concomitant]
     Route: 065
  8. GABAPENTIN [Concomitant]
     Route: 065
  9. TERAZOSIN HYDROCHLORIDE [Concomitant]
     Route: 065

REACTIONS (5)
  - ANGINA UNSTABLE [None]
  - CORONARY ARTERY DISEASE [None]
  - MYOCARDIAL INFARCTION [None]
  - SEXUAL DYSFUNCTION [None]
  - VENTRICULAR EXTRASYSTOLES [None]
